FAERS Safety Report 24851531 (Version 1)
Quarter: 2025Q1

REPORT INFORMATION
  Report Type: Spontaneous
  Country: US (occurrence: US)
  Receive Date: 20250116
  Receipt Date: 20250116
  Transmission Date: 20250408
  Serious: No
  Sender: SK LIFE SCIENCE
  Company Number: US-SK LIFE SCIENCE, INC-SKPVG-2024-001280

PATIENT

DRUGS (5)
  1. XCOPRI [Suspect]
     Active Substance: CENOBAMATE
     Indication: Seizure
     Route: 048
  2. XCOPRI [Suspect]
     Active Substance: CENOBAMATE
     Dosage: 150 MILLIGRAM, QD ALTERNATING DOSES
     Route: 048
     Dates: end: 20240610
  3. XCOPRI [Suspect]
     Active Substance: CENOBAMATE
     Dosage: 200 MILLIGRAM, QD ALTERNATING DOSES
     Route: 048
     Dates: end: 20240610
  4. XCOPRI [Suspect]
     Active Substance: CENOBAMATE
     Route: 048
  5. DEPAKOTE ER [Concomitant]
     Active Substance: DIVALPROEX SODIUM
     Indication: Product used for unknown indication
     Route: 065

REACTIONS (7)
  - Seizure [Recovered/Resolved]
  - Haematoma [Unknown]
  - Fall [Unknown]
  - Haemorrhage [Unknown]
  - Contusion [Unknown]
  - Incorrect dose administered [Unknown]
  - Drug titration error [Unknown]

NARRATIVE: CASE EVENT DATE: 20240610
